FAERS Safety Report 14907876 (Version 1)
Quarter: 2018Q2

REPORT INFORMATION
  Report Type: Report from Study
  Country: BR (occurrence: BR)
  Receive Date: 20180517
  Receipt Date: 20180517
  Transmission Date: 20180711
  Serious: Yes (Other)
  Sender: FDA-Public Use
  Company Number: PHHY2014BR168909

PATIENT
  Age: 35 Year
  Sex: Female
  Weight: 70 kg

DRUGS (13)
  1. MIFLASONE [Suspect]
     Active Substance: BECLOMETHASONE DIPROPIONATE
     Indication: ASTHMA
     Dosage: 250 MG, BID
     Route: 055
     Dates: start: 2012
  2. SERETIDE [Concomitant]
     Active Substance: FLUTICASONE PROPIONATE\SALMETEROL XINAFOATE
     Indication: ASTHMA
     Dosage: 2 DF, QD (JETS)
     Route: 055
     Dates: end: 201704
  3. ASTRO [Concomitant]
     Indication: SECRETION DISCHARGE
     Dosage: 1 DF, QD
     Route: 065
     Dates: start: 201411, end: 201411
  4. CLENIL [Concomitant]
     Active Substance: BECLOMETHASONE DIPROPIONATE
     Indication: ASTHMA
     Dosage: 2 DF, QD
     Route: 055
     Dates: start: 201704
  5. XOLAIR [Suspect]
     Active Substance: OMALIZUMAB
     Indication: ASTHMA
     Dosage: 1 DF, QMO
     Route: 065
     Dates: start: 2014
  6. ALENIA [Concomitant]
     Active Substance: BUDESONIDE\FORMOTEROL FUMARATE
     Indication: ASTHMA
     Dosage: 2 DF, QD
     Route: 055
     Dates: start: 201704
  7. AEROLIN [Concomitant]
     Active Substance: ALBUTEROL
     Indication: ASTHMA
     Dosage: 100 MG, ONLY AT THE TIME OF EPISODES
     Route: 055
     Dates: start: 2014
  8. XOLAIR [Suspect]
     Active Substance: OMALIZUMAB
     Dosage: 1 DF, QMO
     Route: 058
     Dates: start: 20180316, end: 20180316
  9. NIMESULIDE [Concomitant]
     Active Substance: NIMESULIDE
     Indication: PHARYNGITIS
     Dosage: 100 MG, BID (EVERY 12 HRS)
     Route: 065
  10. NEOPIRIDIN [Concomitant]
     Indication: PHARYNGITIS
     Dosage: TID
     Route: 065
  11. XOLAIR [Suspect]
     Active Substance: OMALIZUMAB
     Dosage: 1 DF, QMO
     Route: 058
     Dates: start: 20140701, end: 20170728
  12. LEVOFLOXACIN. [Suspect]
     Active Substance: LEVOFLOXACIN
     Indication: PRODUCT USED FOR UNKNOWN INDICATION
     Dosage: 500 MG, QD
     Route: 065
  13. SERETIDE [Concomitant]
     Active Substance: FLUTICASONE PROPIONATE\SALMETEROL XINAFOATE
     Dosage: 1 DF, BID (1 SPRAY 2 TIMES A DAY)
     Route: 055

REACTIONS (31)
  - Pneumonia [Not Recovered/Not Resolved]
  - Heart rate abnormal [Recovering/Resolving]
  - Non-cardiac chest pain [Unknown]
  - Asthma [Recovered/Resolved]
  - Cough [Recovering/Resolving]
  - Pharyngitis [Not Recovered/Not Resolved]
  - Immunodeficiency [Not Recovered/Not Resolved]
  - General physical condition abnormal [Not Recovered/Not Resolved]
  - Oropharyngeal pain [Recovering/Resolving]
  - Speech disorder [Recovered/Resolved]
  - Back pain [Not Recovered/Not Resolved]
  - Fatigue [Recovering/Resolving]
  - Laryngitis [Recovering/Resolving]
  - Aphonia [Recovered/Resolved]
  - Sinusitis [Not Recovered/Not Resolved]
  - Drug dependence [Unknown]
  - Rhinorrhoea [Not Recovered/Not Resolved]
  - Pain [Not Recovered/Not Resolved]
  - Headache [Recovered/Resolved]
  - Asthmatic crisis [Recovering/Resolving]
  - Terminal state [Unknown]
  - Secretion discharge [Recovering/Resolving]
  - Palpitations [Recovered/Resolved]
  - Asthenia [Not Recovered/Not Resolved]
  - Gait disturbance [Unknown]
  - Insomnia [Recovering/Resolving]
  - Feeling abnormal [Not Recovered/Not Resolved]
  - Malaise [Recovered/Resolved]
  - Sensitivity to weather change [Recovering/Resolving]
  - Influenza [Recovering/Resolving]
  - Lung hyperinflation [Unknown]

NARRATIVE: CASE EVENT DATE: 20150610
